FAERS Safety Report 9366444 (Version 1)
Quarter: 2013Q2

REPORT INFORMATION
  Report Type: Spontaneous
  Country: US (occurrence: US)
  Receive Date: 20130625
  Receipt Date: 20130625
  Transmission Date: 20140414
  Serious: Yes (Hospitalization)
  Sender: FDA-Public Use
  Company Number: US-SANOFI-AVENTIS-2013SA062697

PATIENT
  Sex: Female

DRUGS (1)
  1. OXALIPLATIN [Suspect]
     Indication: COLON CANCER
     Route: 041

REACTIONS (4)
  - Loss of consciousness [Unknown]
  - Cardiac disorder [Unknown]
  - Dyspnoea [Unknown]
  - Blood pressure abnormal [Unknown]
